FAERS Safety Report 22119481 (Version 1)
Quarter: 2023Q1

REPORT INFORMATION
  Report Type: Spontaneous
  Country: US (occurrence: None)
  Receive Date: 20230321
  Receipt Date: 20230321
  Transmission Date: 20230417
  Serious: No
  Sender: FDA-Public Use
  Company Number: US-ROCHE-3085866

PATIENT
  Sex: Male
  Weight: 81.720 kg

DRUGS (9)
  1. ERIVEDGE [Suspect]
     Active Substance: VISMODEGIB
     Indication: Basal cell carcinoma
     Route: 048
     Dates: start: 20220410
  2. DONEPEZIL [Concomitant]
     Active Substance: DONEPEZIL
     Dosage: TAKES AT NIGHT; STARTED BEFORE ERIVEDGE ;ONGOING: YES
     Route: 048
  3. ATORVASTATIN [Concomitant]
     Active Substance: ATORVASTATIN
     Indication: Blood cholesterol increased
     Dosage: STARTED BEFORE ERIVEDGE ;ONGOING: YES
     Route: 048
  4. FERROUS SULFATE [Concomitant]
     Active Substance: FERROUS SULFATE
     Dosage: STARTED BEFORE ERIVEDGE ;ONGOING: YES
     Route: 048
  5. MYRBETRIQ [Concomitant]
     Active Substance: MIRABEGRON
     Dosage: STARTED BEFORE ERIVEDGE ;ONGOING: YES
     Route: 048
  6. HYTRIN [Concomitant]
     Active Substance: TERAZOSIN HYDROCHLORIDE
     Indication: Micturition urgency
     Dosage: (2) 2 MG CAPSULES; TAKES AT BEDTIME; STARTED BEFORE ERIVEDGE ;ONGOING: YES
     Route: 048
  7. GENVOYA [Concomitant]
     Active Substance: COBICISTAT\ELVITEGRAVIR\EMTRICITABINE\TENOFOVIR ALAFENAMIDE FUMARATE
     Dosage: 150/200/10 MG; STARTED BEFORE ERIVEDGE ;ONGOING: YES
     Route: 048
  8. OMEPRAZOLE [Concomitant]
     Active Substance: OMEPRAZOLE
     Dosage: STARTED BEFORE ERIVEDGE ;ONGOING: YES
     Route: 048
  9. PROBIOTICS (UNK INGREDIENTS) [Concomitant]
     Dosage: STARTED BEFORE ERIVEDGE ;ONGOING: YES
     Route: 048

REACTIONS (1)
  - Anorgasmia [Not Recovered/Not Resolved]
